FAERS Safety Report 24323401 (Version 1)
Quarter: 2024Q3

REPORT INFORMATION
  Report Type: Spontaneous
  Country: US (occurrence: US)
  Receive Date: 20240916
  Receipt Date: 20240916
  Transmission Date: 20241017
  Serious: Yes (Other)
  Sender: SAMSUNG BIOEPIS
  Company Number: US-SAMSUNG BIOEPIS-SB-2024-27032

PATIENT
  Age: 41 Year
  Sex: Female

DRUGS (3)
  1. TRASTUZUMAB [Suspect]
     Active Substance: TRASTUZUMAB
     Indication: Breast cancer metastatic
     Dosage: 8 MG/KG CYCLE 1 DAY 1 THEN 6 MG/KG DAY 1;
  2. PERTUZUMAB [Suspect]
     Active Substance: PERTUZUMAB
     Indication: Breast cancer metastatic
     Dosage: 840 MG I.V. CYCLE 1 DAY 1 THEN 420 MG I.V. DAY 1;
     Route: 042
  3. PACLITAXEL [Suspect]
     Active Substance: PACLITAXEL
     Indication: Breast cancer metastatic
     Dosage: 80 MG/M2, DAYS 1, 8 AND 15;
     Route: 042

REACTIONS (9)
  - Neutropenia [Unknown]
  - Mesenteric vein thrombosis [Unknown]
  - Stomatitis [Unknown]
  - Diarrhoea [Unknown]
  - Urinary tract infection [Unknown]
  - Sinusitis [Unknown]
  - Haematuria [Unknown]
  - Inflammation [Unknown]
  - Peripheral sensory neuropathy [Unknown]
